FAERS Safety Report 25721829 (Version 2)
Quarter: 2025Q3

REPORT INFORMATION
  Report Type: Spontaneous
  Country: US (occurrence: US)
  Receive Date: 20250825
  Receipt Date: 20250901
  Transmission Date: 20251021
  Serious: No
  Sender: BAUSCH AND LOMB
  Company Number: US-BAUSCHBL-2025BNL014492

PATIENT

DRUGS (2)
  1. ERYTHROMYCIN [Suspect]
     Active Substance: ERYTHROMYCIN
     Indication: Product used for unknown indication
     Route: 047
  2. ERYTHROMYCIN [Suspect]
     Active Substance: ERYTHROMYCIN
     Route: 047

REACTIONS (5)
  - Eye discharge [Unknown]
  - Foreign body in eye [Unknown]
  - Eye irritation [Unknown]
  - Product contamination physical [Unknown]
  - Poor quality product administered [Unknown]
